FAERS Safety Report 15680295 (Version 1)
Quarter: 2018Q4

REPORT INFORMATION
  Report Type: Spontaneous
  Country: BR (occurrence: BR)
  Receive Date: 20181203
  Receipt Date: 20181203
  Transmission Date: 20190205
  Serious: Yes (Hospitalization, Other)
  Sender: FDA-Public Use
  Company Number: BR-PFIZER INC-2018484582

PATIENT
  Sex: Female

DRUGS (6)
  1. LORAX [Suspect]
     Active Substance: LORAZEPAM
     Dosage: 3 TABLETS OF 2 MG, 1X/DAY
     Dates: start: 1985, end: 2018
  2. LORAX [Suspect]
     Active Substance: LORAZEPAM
     Indication: ANXIETY
     Dosage: 1 TABLET OF 1 MG, 1X/DAY
     Dates: start: 198411, end: 1985
  3. LORAX [Suspect]
     Active Substance: LORAZEPAM
     Dosage: 8 MG, DAILY
  4. LORAX [Suspect]
     Active Substance: LORAZEPAM
     Dosage: 4 MG, DAILY
  5. LORAX [Suspect]
     Active Substance: LORAZEPAM
     Dosage: 6 TABLETS OF 1 MG, 1X/DAY
     Dates: start: 2018
  6. LORAX [Suspect]
     Active Substance: LORAZEPAM
     Dosage: 9 MG, DAILY

REACTIONS (12)
  - Diverticulitis [Unknown]
  - Memory impairment [Unknown]
  - Drug withdrawal syndrome [Unknown]
  - Product use issue [Unknown]
  - Diabetes mellitus [Unknown]
  - Depression [Not Recovered/Not Resolved]
  - Chronic obstructive pulmonary disease [Unknown]
  - Dizziness [Not Recovered/Not Resolved]
  - Hypertension [Unknown]
  - Gastritis [Unknown]
  - Ulcer [Unknown]
  - Drug dependence [Not Recovered/Not Resolved]

NARRATIVE: CASE EVENT DATE: 201802
